FAERS Safety Report 22357168 (Version 1)
Quarter: 2023Q2

REPORT INFORMATION
  Report Type: Report from Study
  Country: US (occurrence: US)
  Receive Date: 20230524
  Receipt Date: 20230524
  Transmission Date: 20230721
  Serious: Yes (Other)
  Sender: FDA-Public Use
  Company Number: US-ABBVIE-5177261

PATIENT
  Age: 84 Year
  Sex: Male

DRUGS (1)
  1. LUPRON [Suspect]
     Active Substance: LEUPROLIDE ACETATE
     Indication: Prostate cancer
     Route: 058
     Dates: start: 20170101

REACTIONS (3)
  - Urinary bladder haemorrhage [Recovering/Resolving]
  - Cardiac arrest [Recovered/Resolved]
  - Bladder perforation [Recovering/Resolving]

NARRATIVE: CASE EVENT DATE: 20211201
